FAERS Safety Report 22533957 (Version 2)
Quarter: 2023Q2

REPORT INFORMATION
  Report Type: Spontaneous
  Country: EG (occurrence: EG)
  Receive Date: 20230608
  Receipt Date: 20230616
  Transmission Date: 20230721
  Serious: Yes (Other)
  Sender: FDA-Public Use
  Company Number: EG-NOVOPROD-1072106

PATIENT
  Age: 63 Year
  Sex: Male
  Weight: 170 kg

DRUGS (2)
  1. INSULIN HUMAN [Suspect]
     Active Substance: INSULIN HUMAN
     Indication: Diabetes mellitus
     Dosage: 55 IU, QD (30IU AM +25 PM)
     Route: 058
  2. INSULIN HUMAN [Suspect]
     Active Substance: INSULIN HUMAN
     Dosage: 80 IU, QD (45 IU AM + 35 IU PM)
     Route: 058

REACTIONS (2)
  - Arterial occlusive disease [Unknown]
  - Hypoglycaemia [Recovered/Resolved]
